FAERS Safety Report 6685215-4 (Version None)
Quarter: 2010Q2

REPORT INFORMATION
  Report Type: 
  Country: None (occurrence: None)
  Receive Date: 20100416
  Receipt Date: 20100409
  Transmission Date: 20101027
  Serious: Yes (Hospitalization, Other)
  Sender: FDA-Public Use
  Company Number: FR-AMGEN-QUU387350

PATIENT
  Age: 45 Year
  Sex: Female
  Weight: 65 kg

DRUGS (2)
  1. NPLATE [Suspect]
     Indication: IDIOPATHIC THROMBOCYTOPENIC PURPURA
     Route: 058
     Dates: start: 20090914
  2. CORTANCYL [Concomitant]

REACTIONS (17)
  - BACK PAIN [None]
  - CONJUNCTIVAL HAEMORRHAGE [None]
  - DYSPNOEA EXERTIONAL [None]
  - HAEMORRHAGIC DISORDER [None]
  - LACRIMATION INCREASED [None]
  - MIGRAINE [None]
  - MUCOSAL HAEMORRHAGE [None]
  - NAUSEA [None]
  - PARAESTHESIA [None]
  - PETECHIAE [None]
  - PLATELET COUNT ABNORMAL [None]
  - PRURITUS [None]
  - RASH [None]
  - RASH PAPULAR [None]
  - SKIN HAEMORRHAGE [None]
  - THROMBOCYTOSIS [None]
  - VISUAL IMPAIRMENT [None]
